FAERS Safety Report 7418439-9 (Version None)
Quarter: 2011Q2

REPORT INFORMATION
  Report Type: 
  Country: None (occurrence: None)
  Receive Date: 20110415
  Receipt Date: 20110406
  Transmission Date: 20111010
  Serious: Yes (Life-Threatening, Hospitalization, Other)
  Sender: FDA-Public Use
  Company Number: DE-BRISTOL-MYERS SQUIBB COMPANY-15556277

PATIENT
  Age: 42 Year
  Sex: Male
  Weight: 85 kg

DRUGS (13)
  1. ABILIFY [Suspect]
     Indication: PSYCHOTIC DISORDER
     Dosage: 1 DF= 1/2 TABS OF ABILIFY 10 MG.
     Route: 048
     Dates: start: 20110209, end: 20110214
  2. LEVOTHYROXINE SODIUM [Concomitant]
  3. DOMPERIDONE [Concomitant]
  4. CATAPRESAN [Concomitant]
  5. MACROGOL [Concomitant]
  6. AMLODIPINE [Concomitant]
  7. ENOXAPARIN [Concomitant]
     Route: 058
  8. PANTOPRAZOLE [Concomitant]
  9. DIHYDRALAZINE [Concomitant]
     Dosage: 25 MG.1 DF: 2 UNIT NOS
  10. DOXAZOSIN [Concomitant]
  11. RAMIPRIL [Concomitant]
  12. ZIPRASIDONE [Concomitant]
  13. DECOSTRIOL [Concomitant]

REACTIONS (5)
  - HAEMATEMESIS [None]
  - RESPIRATORY FAILURE [None]
  - GASTROOESOPHAGITIS [None]
  - HYPOTHYROIDISM [None]
  - HYPOTHERMIA [None]
